FAERS Safety Report 9159391 (Version 1)
Quarter: 2013Q1

REPORT INFORMATION
  Report Type: Spontaneous
  Country: MX (occurrence: MX)
  Receive Date: 20130313
  Receipt Date: 20130313
  Transmission Date: 20140127
  Serious: Yes (Other)
  Sender: FDA-Public Use
  Company Number: PHHY2013MX020522

PATIENT
  Age: 79 Year
  Sex: Female

DRUGS (3)
  1. EXFORGE HCT [Suspect]
     Indication: BLOOD PRESSURE INCREASED
     Dosage: 1 DF (160/5/12.5MG), DAILY
     Route: 048
     Dates: start: 2010
  2. ONBREZ [Concomitant]
     Dosage: 1 DF, UKN, DAILY
     Dates: start: 201205
  3. MIFLONIDE [Concomitant]
     Dosage: 2 DF, UKN, DAILY
     Dates: start: 201206, end: 2012

REACTIONS (3)
  - Infarction [Recovered/Resolved]
  - Anoxia [Recovered/Resolved]
  - Nasal congestion [Recovered/Resolved]
